FAERS Safety Report 9617985 (Version 2)
Quarter: 2013Q4

REPORT INFORMATION
  Report Type: Report from Study
  Country: AU (occurrence: AU)
  Receive Date: 20131011
  Receipt Date: 20131024
  Transmission Date: 20140711
  Serious: Yes (Death, Hospitalization)
  Sender: FDA-Public Use
  Company Number: AU-ROCHE-1288104

PATIENT
  Sex: Female

DRUGS (12)
  1. RANIBIZUMAB [Suspect]
     Indication: PRODUCT USED FOR UNKNOWN INDICATION
     Route: 050
     Dates: start: 20100414
  2. RANIBIZUMAB [Suspect]
     Route: 050
     Dates: start: 20130823, end: 20130823
  3. PRAVASTATIN [Concomitant]
     Route: 065
     Dates: start: 20030502
  4. ATACAND [Concomitant]
     Route: 065
     Dates: start: 20110810
  5. NITRAZEPAM [Concomitant]
  6. PLAVIX [Concomitant]
     Route: 065
     Dates: start: 20080423
  7. KLACID (AUSTRALIA) [Concomitant]
     Route: 065
     Dates: start: 2011
  8. PANADOL OSTEO [Concomitant]
     Route: 065
     Dates: start: 1990
  9. CARTIA (AUSTRALIA) [Concomitant]
  10. OMEPRAZOLE [Concomitant]
     Route: 065
     Dates: start: 20030807
  11. ZYRTEC [Concomitant]
     Route: 065
     Dates: start: 2011
  12. ZOLOFT [Concomitant]

REACTIONS (1)
  - Cerebral haemorrhage [Fatal]
